FAERS Safety Report 12422805 (Version 1)
Quarter: 2016Q2

REPORT INFORMATION
  Report Type: Spontaneous
  Country: US (occurrence: None)
  Receive Date: 20160531
  Receipt Date: 20160531
  Transmission Date: 20160815
  Serious: Yes (Disabling)
  Sender: FDA-Public Use
  Company Number: None

PATIENT
  Age: 70 Year
  Sex: Female
  Weight: 53.98 kg

DRUGS (5)
  1. ELIQUIS [Concomitant]
     Active Substance: APIXABAN
  2. MULTIVITAMIN [Concomitant]
     Active Substance: VITAMINS
  3. LEVOFLOXACIN. [Suspect]
     Active Substance: LEVOFLOXACIN
     Indication: INFECTION
     Route: 048
     Dates: start: 20150910, end: 20150910
  4. LEVOFLOXACIN. [Suspect]
     Active Substance: LEVOFLOXACIN
     Indication: BODY TEMPERATURE INCREASED
     Route: 048
     Dates: start: 20150910, end: 20150910
  5. OMEGA-3 FATTY ACIDS/FISH OIL [Concomitant]

REACTIONS (18)
  - Insomnia [None]
  - Muscle spasms [None]
  - Arthralgia [None]
  - Pain in extremity [None]
  - Burning sensation [None]
  - Tinnitus [None]
  - Neuropathy peripheral [None]
  - Balance disorder [None]
  - Dyspnoea [None]
  - Feeling abnormal [None]
  - Cardiac disorder [None]
  - Heart rate increased [None]
  - Dry mouth [None]
  - Tendon rupture [None]
  - Pain [None]
  - Dizziness [None]
  - Periarthritis [None]
  - Gait disturbance [None]

NARRATIVE: CASE EVENT DATE: 20150910
